FAERS Safety Report 17903576 (Version 4)
Quarter: 2024Q3

REPORT INFORMATION
  Report Type: Other
  Country: CA (occurrence: CA)
  Receive Date: 20200617
  Receipt Date: 20240802
  Transmission Date: 20241017
  Serious: Yes (Other)
  Sender: INTERCEPT PHARMACEUTICALS
  Company Number: CA-INTERCEPT-PM2020001272

PATIENT
  Age: 49 Year
  Sex: Female

DRUGS (5)
  1. OCALIVA [Suspect]
     Active Substance: OBETICHOLIC ACID
     Indication: Primary biliary cholangitis
     Dosage: 5 MG, QD
     Route: 048
     Dates: start: 20200530, end: 20200530
  2. OCALIVA [Suspect]
     Active Substance: OBETICHOLIC ACID
     Dosage: 5 MG, QD
     Route: 048
     Dates: start: 20200711
  3. OCALIVA [Suspect]
     Active Substance: OBETICHOLIC ACID
     Dosage: 10 MG, QD
     Route: 048
  4. LUVOX [Suspect]
     Active Substance: FLUVOXAMINE MALEATE
     Indication: Seasonal affective disorder
     Dosage: 100 MG, QD
     Dates: end: 202007
  5. URSO                               /00465701/ [Concomitant]
     Dosage: 500 MG, BID (INSUFFICIENT RESPONSE IN MONOTHERAPY)
     Dates: start: 2018

REACTIONS (7)
  - Serotonin syndrome [Unknown]
  - Muscle spasms [Unknown]
  - Hyperhidrosis [Unknown]
  - Confusional state [Unknown]
  - Blood alkaline phosphatase abnormal [Unknown]
  - Palpitations [Unknown]
  - Drug ineffective [Unknown]

NARRATIVE: CASE EVENT DATE: 20200530
